FAERS Safety Report 15722269 (Version 1)
Quarter: 2018Q4

REPORT INFORMATION
  Report Type: Spontaneous
  Country: US (occurrence: US)
  Receive Date: 20181213
  Receipt Date: 20181213
  Transmission Date: 20190205
  Serious: Yes (Other)
  Sender: FDA-Public Use
  Company Number: None

PATIENT
  Age: 60 Year
  Sex: Male
  Weight: 110.25 kg

DRUGS (1)
  1. METFORMIN - PICKED UP AT LOCAL PHARMACY (CVS) IN NEW BERN, NC [Suspect]
     Active Substance: METFORMIN HYDROCHLORIDE
     Indication: TYPE 2 DIABETES MELLITUS
     Dosage: ?          QUANTITY:1 TABLET(S);?
     Route: 048
     Dates: start: 20181106, end: 20181109

REACTIONS (2)
  - Suicidal ideation [None]
  - Morbid thoughts [None]

NARRATIVE: CASE EVENT DATE: 20181109
